FAERS Safety Report 9784114 (Version 1)
Quarter: 2013Q4

REPORT INFORMATION
  Report Type: Spontaneous
  Country: US (occurrence: US)
  Receive Date: 20131226
  Receipt Date: 20131226
  Transmission Date: 20140711
  Serious: Yes (Other)
  Sender: FDA-Public Use
  Company Number: US-PFIZER INC-2013369292

PATIENT
  Age: 58 Year
  Sex: Male
  Weight: 104.31 kg

DRUGS (6)
  1. LYRICA [Suspect]
     Indication: NEURALGIA
     Dosage: 200 MG, 3X/DAY
     Route: 048
     Dates: start: 2008
  2. OXYCODONE [Concomitant]
     Dosage: UNK
  3. PROPRANOLOL [Concomitant]
     Dosage: UNK
  4. XANAX [Concomitant]
     Dosage: UNK
  5. CYMBALTA [Concomitant]
     Dosage: UNK
  6. ABILIFY [Concomitant]
     Dosage: UNK

REACTIONS (3)
  - Systemic lupus erythematosus [Not Recovered/Not Resolved]
  - Candida infection [Not Recovered/Not Resolved]
  - Weight increased [Not Recovered/Not Resolved]
